FAERS Safety Report 12874598 (Version 1)
Quarter: 2016Q4

REPORT INFORMATION
  Report Type: Spontaneous
  Country: FR (occurrence: FR)
  Receive Date: 20161021
  Receipt Date: 20161021
  Transmission Date: 20170207
  Serious: Yes (Other)
  Sender: FDA-Public Use
  Company Number: FR-ALLERGAN-1673082US

PATIENT
  Age: 44 Year
  Sex: Female

DRUGS (2)
  1. ULIPRISTAL ACETATE - BP [Suspect]
     Active Substance: ULIPRISTAL ACETATE
     Indication: UTERINE LEIOMYOMA
     Dosage: UNK
     Dates: start: 201511, end: 2016
  2. ULIPRISTAL ACETATE - BP [Suspect]
     Active Substance: ULIPRISTAL ACETATE
     Dosage: UNK
     Dates: start: 2016, end: 201608

REACTIONS (2)
  - Sudden hearing loss [Recovering/Resolving]
  - Uterine leiomyoma [Unknown]

NARRATIVE: CASE EVENT DATE: 2016
